FAERS Safety Report 8859505 (Version 2)
Quarter: 2015Q3

REPORT INFORMATION
  Report Type: Report from Study
  Country: US (occurrence: US)
  Receive Date: 20121024
  Receipt Date: 20150911
  Transmission Date: 20151125
  Serious: Yes (Other)
  Sender: FDA-Public Use
  Company Number: US-ROCHE-CID000000002141111

PATIENT
  Sex: Male

DRUGS (3)
  1. PUVA [Concomitant]
     Active Substance: PSORALEN
  2. RAPTIVA [Suspect]
     Active Substance: EFALIZUMAB
     Indication: PUSTULAR PSORIASIS
  3. RAPTIVA [Suspect]
     Active Substance: EFALIZUMAB
     Indication: PSORIASIS
     Route: 065

REACTIONS (2)
  - Arthralgia [Unknown]
  - Skin lesion [Unknown]
